FAERS Safety Report 23404982 (Version 2)
Quarter: 2024Q1

REPORT INFORMATION
  Report Type: Spontaneous
  Country: JP (occurrence: None)
  Receive Date: 20240116
  Receipt Date: 20240119
  Transmission Date: 20240410
  Serious: Yes (Other)
  Sender: FDA-Public Use
  Company Number: JP-Orion Corporation ORION PHARMA-ENTC2024-0004

PATIENT
  Age: 75 Year
  Sex: Female

DRUGS (1)
  1. STALEVO [Suspect]
     Active Substance: CARBIDOPA\ENTACAPONE\LEVODOPA
     Indication: Parkinson^s disease
     Dosage: STRENGTH: LEVODOPA 100MG, CARBIDOPA 10MG, ENTACAPONE 100MG

REACTIONS (1)
  - Parkinson^s disease [Unknown]
